FAERS Safety Report 21732355 (Version 2)
Quarter: 2023Q2

REPORT INFORMATION
  Report Type: Spontaneous
  Country: US (occurrence: US)
  Receive Date: 20221215
  Receipt Date: 20230515
  Transmission Date: 20230722
  Serious: No
  Sender: FDA-Public Use
  Company Number: US-NOVEN PHARMACEUTICALS, INC.-2022-NOV-US000288

PATIENT
  Sex: Male

DRUGS (3)
  1. DAYTRANA [Suspect]
     Active Substance: METHYLPHENIDATE
     Indication: Attention deficit hyperactivity disorder
     Dosage: 15 MG/ 9 HOURS, UNK
     Route: 062
  2. DAYTRANA [Suspect]
     Active Substance: METHYLPHENIDATE
     Indication: Autism spectrum disorder
     Dosage: 10 MG/ 9 HOURS, UNK
     Route: 062
  3. DAYTRANA [Suspect]
     Active Substance: METHYLPHENIDATE
     Dosage: 20 MG/ 9 HOURS, UNK
     Route: 062
     Dates: start: 2020

REACTIONS (3)
  - Drug ineffective [Recovered/Resolved]
  - Aggression [Not Recovered/Not Resolved]
  - Agitation [Unknown]
